FAERS Safety Report 12174750 (Version 1)
Quarter: 2016Q1

REPORT INFORMATION
  Report Type: Spontaneous
  Country: IT (occurrence: IT)
  Receive Date: 20160314
  Receipt Date: 20160314
  Transmission Date: 20160526
  Serious: Yes (Other)
  Sender: FDA-Public Use
  Company Number: IT-HOSPIRA-3199561

PATIENT
  Age: 46 Year
  Sex: Female
  Weight: 78 kg

DRUGS (1)
  1. DOCETAXEL HOSPIRA [Suspect]
     Active Substance: DOCETAXEL
     Indication: BREAST CANCER
     Dosage: 75 MG/M2 OF THE BODY SURFACE AREA
     Route: 042
     Dates: start: 20160202, end: 20160202

REACTIONS (5)
  - Leukopenia [Unknown]
  - Skin exfoliation [Recovered/Resolved]
  - Pain in extremity [Recovered/Resolved]
  - Neutropenia [Unknown]
  - Stomatitis [Recovered/Resolved]

NARRATIVE: CASE EVENT DATE: 20160206
